FAERS Safety Report 6487712-3 (Version None)
Quarter: 2009Q4

REPORT INFORMATION
  Report Type: 
  Country: None (occurrence: None)
  Receive Date: 20091210
  Receipt Date: 20090824
  Transmission Date: 20100525
  Serious: No
  Sender: FDA-Public Use
  Company Number: US-AMGEN-KDL361441

PATIENT
  Sex: Male
  Weight: 74 kg

DRUGS (5)
  1. ENBREL [Suspect]
     Indication: ANKYLOSING SPONDYLITIS
     Route: 058
     Dates: start: 20080708
  2. LIDODERM PATCH (ENDO PHARMACEUTICALS) [Concomitant]
     Dates: start: 20081112
  3. MORPHINE [Concomitant]
     Dates: start: 20050518
  4. PHENERGAN HCL [Concomitant]
     Dates: start: 20070222
  5. LYRICA [Concomitant]
     Dates: start: 20080708

REACTIONS (8)
  - ARTHRALGIA [None]
  - DIZZINESS [None]
  - FATIGUE [None]
  - MIGRAINE [None]
  - NAUSEA [None]
  - PAIN [None]
  - VISION BLURRED [None]
  - VOMITING [None]
